FAERS Safety Report 9307813 (Version 1)
Quarter: 2013Q2

REPORT INFORMATION
  Report Type: Spontaneous
  Country: ES (occurrence: ES)
  Receive Date: 20130524
  Receipt Date: 20130524
  Transmission Date: 20140414
  Serious: Yes (Other)
  Sender: FDA-Public Use
  Company Number: ES-PFIZER INC-2013156487

PATIENT
  Age: 36 Year
  Sex: Female

DRUGS (2)
  1. DALACIN [Suspect]
     Indication: BARTHOLINITIS
     Dosage: UNK
     Route: 048
     Dates: start: 20130314
  2. CLINDAMYCIN [Concomitant]
     Indication: BARTHOLINITIS
     Dosage: 20 MG, UNK
     Route: 067

REACTIONS (2)
  - Angioedema [Unknown]
  - Erythema multiforme [Unknown]
